FAERS Safety Report 10008873 (Version 1)
Quarter: 2014Q1

REPORT INFORMATION
  Report Type: Report from Study
  Country: US (occurrence: US)
  Receive Date: 20140313
  Receipt Date: 20140313
  Transmission Date: 20141002
  Serious: Yes (Hospitalization)
  Sender: FDA-Public Use
  Company Number: GXBR2014US000877

PATIENT
  Age: 64 Year
  Sex: Female
  Weight: 77.98 kg

DRUGS (1)
  1. ENOXAPARIN SODIUM [Suspect]
     Indication: THROMBOSIS PROPHYLAXIS
     Dosage: 80 MG, Q12H
     Route: 058
     Dates: end: 20140105

REACTIONS (11)
  - Incision site haemorrhage [Recovered/Resolved]
  - Incision site complication [Recovered/Resolved]
  - Loss of consciousness [Recovered/Resolved]
  - Disorientation [Not Recovered/Not Resolved]
  - Immobile [Not Recovered/Not Resolved]
  - Pneumonia [Not Recovered/Not Resolved]
  - Gastrointestinal infection [Not Recovered/Not Resolved]
  - Memory impairment [Not Recovered/Not Resolved]
  - Diet refusal [Not Recovered/Not Resolved]
  - Speech disorder [Not Recovered/Not Resolved]
  - Confusional state [Not Recovered/Not Resolved]
